FAERS Safety Report 5782012-9 (Version None)
Quarter: 2008Q2

REPORT INFORMATION
  Report Type: 
  Country: None (occurrence: None)
  Receive Date: 20080623
  Receipt Date: 20080618
  Transmission Date: 20081010
  Serious: Yes (Other)
  Sender: FDA-Public Use
  Company Number: US-ASTRAZENECA-2008UW00663

PATIENT
  Age: 44 Year
  Sex: Male
  Weight: 117.3 kg

DRUGS (16)
  1. SEROQUEL [Suspect]
     Indication: DEPRESSION
     Route: 048
     Dates: start: 20030101, end: 20070701
  2. SEROQUEL [Suspect]
     Indication: BIPOLAR DISORDER
     Route: 048
     Dates: start: 20030101, end: 20070701
  3. SEROQUEL [Suspect]
     Indication: SCHIZOPHRENIA
     Route: 048
     Dates: start: 20030101, end: 20070701
  4. SEROQUEL [Suspect]
     Dosage: VARIOUS DOSES
     Route: 048
     Dates: start: 20030101, end: 20070701
  5. SEROQUEL [Suspect]
     Dosage: VARIOUS DOSES
     Route: 048
     Dates: start: 20030101, end: 20070701
  6. SEROQUEL [Suspect]
     Dosage: VARIOUS DOSES
     Route: 048
     Dates: start: 20030101, end: 20070701
  7. DEPAKOTE [Concomitant]
     Dates: start: 20020101
  8. TRAZODONE HCL [Concomitant]
     Dates: start: 20020101
  9. LOXAPINE [Concomitant]
     Dates: start: 20020101
  10. HALDOL [Concomitant]
     Dates: start: 20020501, end: 20060801
  11. RISPERDAL [Concomitant]
     Dates: start: 20060801, end: 20070501
  12. THORAZINE [Concomitant]
     Dates: start: 19800101, end: 19800101
  13. ZYPREXA [Concomitant]
     Dosage: VARIOUS DOSES, INCLUDING BUT NOT LIMITED TO 20 MG
     Dates: start: 20020601, end: 20020101
  14. PROLIXIN [Concomitant]
  15. GEODON [Concomitant]
     Dosage: 2007
  16. LOXITANE [Concomitant]
     Dates: start: 20030401

REACTIONS (6)
  - BLOOD TRIGLYCERIDES INCREASED [None]
  - CARDIAC OPERATION [None]
  - DIABETES MELLITUS [None]
  - DYSPNOEA [None]
  - HYPERTENSION [None]
  - PNEUMONIA [None]
